FAERS Safety Report 5168179-4 (Version None)
Quarter: 2006Q4

REPORT INFORMATION
  Report Type: 
  Country: None (occurrence: None)
  Receive Date: 20061130
  Receipt Date: 20030725
  Transmission Date: 20070319
  Serious: Yes (Other)
  Sender: FDA-Public Use
  Company Number: 23100339

PATIENT
  Age: 70 Year
  Sex: Male

DRUGS (1)
  1. ARGATROBAN [Suspect]
     Indication: ANTICOAGULANT THERAPY
     Dosage: 155 MG CONT IV
     Route: 042

REACTIONS (6)
  - ACTIVATED PARTIAL THROMBOPLASTIN TIME PROLONGED [None]
  - COAGULATION FACTOR INCREASED [None]
  - EPISTAXIS [None]
  - INTERNATIONAL NORMALISED RATIO INCREASED [None]
  - LIVER FUNCTION TEST ABNORMAL [None]
  - PROTHROMBIN TIME PROLONGED [None]
